FAERS Safety Report 11379875 (Version 1)
Quarter: 2015Q3

REPORT INFORMATION
  Report Type: Spontaneous
  Country: US (occurrence: None)
  Receive Date: 20150813
  Receipt Date: 20150813
  Transmission Date: 20151125
  Serious: Yes (Disabling)
  Sender: FDA-Public Use
  Company Number: None

PATIENT
  Age: 34 Year
  Sex: Female
  Weight: 61.24 kg

DRUGS (1)
  1. XULANE [Suspect]
     Active Substance: ETHINYL ESTRADIOL\NORELGESTROMIN
     Indication: CONTRACEPTION
     Dosage: APPLIED TO A SURFACE, USUALLY THE SKIN
     Dates: start: 20150715, end: 20150812

REACTIONS (4)
  - Product substitution issue [None]
  - Product adhesion issue [None]
  - Product physical issue [None]
  - Menstrual disorder [None]

NARRATIVE: CASE EVENT DATE: 20150812
